FAERS Safety Report 4849794-1 (Version None)
Quarter: 2005Q4

REPORT INFORMATION
  Report Type: 
  Country: None (occurrence: None)
  Receive Date: 20051209
  Receipt Date: 20050608
  Transmission Date: 20060501
  Serious: Yes (Hospitalization, Other)
  Sender: FDA-Public Use
  Company Number: US-MERCK-0506USA01406

PATIENT
  Age: 54 Year
  Sex: Female
  Weight: 76 kg

DRUGS (1)
  1. VIOXX [Suspect]
     Indication: ARTHRITIS
     Route: 048
     Dates: start: 19980101, end: 20040901

REACTIONS (26)
  - ALCOHOLISM [None]
  - ANGINA PECTORIS [None]
  - AORTIC ARTERIOSCLEROSIS [None]
  - AORTIC VALVE CALCIFICATION [None]
  - AORTIC VALVE INCOMPETENCE [None]
  - AORTIC VALVE STENOSIS [None]
  - CARDIAC DISORDER [None]
  - CARDIAC MURMUR [None]
  - CAROTID ARTERY ATHEROMA [None]
  - CAROTID ARTERY STENOSIS [None]
  - CHEST PAIN [None]
  - CORONARY ARTERY DISEASE [None]
  - DILATATION ATRIAL [None]
  - EJECTION FRACTION DECREASED [None]
  - ELECTROCARDIOGRAM CHANGE [None]
  - EXERCISE TOLERANCE DECREASED [None]
  - HYPERLIPIDAEMIA [None]
  - HYPERTENSION [None]
  - HYPOTENSION [None]
  - INJURY [None]
  - MITRAL VALVE INCOMPETENCE [None]
  - MYOCARDIAL INFARCTION [None]
  - OEDEMA PERIPHERAL [None]
  - VENTRICULAR DYSFUNCTION [None]
  - VENTRICULAR EXTRASYSTOLES [None]
  - VENTRICULAR HYPERTROPHY [None]
